FAERS Safety Report 14106736 (Version 1)
Quarter: 2017Q4

REPORT INFORMATION
  Report Type: Spontaneous
  Country: FR (occurrence: FR)
  Receive Date: 20171019
  Receipt Date: 20171019
  Transmission Date: 20180321
  Serious: Yes (Hospitalization)
  Sender: FDA-Public Use
  Company Number: FR-009507513-1710FRA007445

PATIENT
  Age: 34 Year
  Sex: Female

DRUGS (4)
  1. CETROTIDE [Suspect]
     Active Substance: CETRORELIX ACETATE
     Indication: OOCYTE HARVEST
     Dosage: POWDER AND SOLVENT FOR SOLUTION FOR INJECTION, 0.25 MG, QD
     Route: 058
     Dates: start: 20170216, end: 20170224
  2. DECAPEPTYL (ACETATE) [Suspect]
     Active Substance: TRIPTORELIN ACETATE
     Indication: OOCYTE HARVEST
     Dosage: POWDER AND SOLVENT FOR SOLUTION FOR INJECTION,0.2 MG, SINGLE INTAKE
     Route: 058
     Dates: start: 20170224, end: 20170224
  3. GONAL-F [Suspect]
     Active Substance: FOLLITROPIN
     Indication: OOCYTE HARVEST
     Dosage: 200 IU, QD
     Route: 058
     Dates: start: 20170216, end: 20170223
  4. GONADOTROPHINE CHORIONIQUE ENDO 1500 UI/1ML [Suspect]
     Active Substance: GONADOTROPHIN, CHORIONIC
     Indication: OOCYTE HARVEST
     Dosage: 1500 IU, SINGLE INTAKE
     Route: 030
     Dates: start: 20170224, end: 20170224

REACTIONS (1)
  - Peritoneal haemorrhage [Recovered/Resolved]

NARRATIVE: CASE EVENT DATE: 20170226
